FAERS Safety Report 19568909 (Version 1)
Quarter: 2021Q3

REPORT INFORMATION
  Report Type: Spontaneous
  Country: US (occurrence: US)
  Receive Date: 20210716
  Receipt Date: 20210716
  Transmission Date: 20211014
  Serious: Yes (Other)
  Sender: FDA-Public Use
  Company Number: US-PFIZER INC-2021849325

PATIENT
  Age: 71 Year
  Sex: Male

DRUGS (9)
  1. VASOPRESSIN. [Suspect]
     Active Substance: VASOPRESSIN
     Indication: HYPOTENSION
     Dosage: 2 UNITS
  2. PHENYLEPHRINE [Suspect]
     Active Substance: PHENYLEPHRINE HYDROCHLORIDE
     Indication: HYPOTENSION
     Dosage: 200 UG
  3. VASOPRESSIN. [Suspect]
     Active Substance: VASOPRESSIN
     Dosage: 0.04 UNITS/MIN
  4. VASOPRESSIN. [Suspect]
     Active Substance: VASOPRESSIN
     Dosage: MULTIPLE BOLUSES INCREASED TO 0.08 UNITS/MIN
  5. EPINEPHRINE. [Suspect]
     Active Substance: EPINEPHRINE
     Indication: HYPOTENSION
     Dosage: 20 MG
  6. VASOPRESSIN. [Suspect]
     Active Substance: VASOPRESSIN
     Dosage: MULTIPLE BOLUSES, INCREASED TO 0.06 UNITS/MIN
  7. NOREPINEPHRINE. [Concomitant]
     Active Substance: NOREPINEPHRINE
     Dosage: 6 UG/MIN
  8. EPINEPHRINE. [Suspect]
     Active Substance: EPINEPHRINE
     Dosage: 3 UG/MIN
  9. CALCIUM CHLORIDE. [Concomitant]
     Active Substance: CALCIUM CHLORIDE
     Dosage: UNK

REACTIONS (1)
  - Vasoplegia syndrome [Recovered/Resolved]
